FAERS Safety Report 17115919 (Version 7)
Quarter: 2020Q2

REPORT INFORMATION
  Report Type: Spontaneous
  Country: US (occurrence: US)
  Receive Date: 20191205
  Receipt Date: 20200403
  Transmission Date: 20200713
  Serious: No
  Sender: FDA-Public Use
  Company Number: US-PFIZER INC-2019523159

PATIENT
  Age: 72 Year
  Sex: Female
  Weight: 97 kg

DRUGS (2)
  1. LETROZOLE. [Concomitant]
     Active Substance: LETROZOLE
     Dosage: UNK (2.5)
     Dates: start: 201912
  2. IBRANCE [Suspect]
     Active Substance: PALBOCICLIB
     Indication: BREAST CANCER FEMALE
     Dosage: 125 MG, CYCLIC (21 DAYS ON AND 7 DAYS OFF)
     Route: 048
     Dates: start: 201912

REACTIONS (8)
  - Alopecia [Unknown]
  - Cough [Not Recovered/Not Resolved]
  - Neoplasm progression [Recovering/Resolving]
  - Taste disorder [Unknown]
  - Abdominal discomfort [Unknown]
  - Decreased appetite [Unknown]
  - Fatigue [Unknown]
  - Ageusia [Unknown]
